FAERS Safety Report 19723782 (Version 2)
Quarter: 2021Q3

REPORT INFORMATION
  Report Type: Spontaneous
  Country: US (occurrence: US)
  Receive Date: 20210820
  Receipt Date: 20210910
  Transmission Date: 20211014
  Serious: No
  Sender: FDA-Public Use
  Company Number: US-TEVA-2021-US-1943212

PATIENT
  Sex: Male

DRUGS (2)
  1. QNASL [Suspect]
     Active Substance: BECLOMETHASONE DIPROPIONATE
     Indication: MITE ALLERGY
     Dosage: 80MCP PER SPRAY, TWICE A DAY, ONCE IN THE MORNING AND ONCE IN THE EVENING, ONE SPRAY IN EACH NOSTRIL
     Route: 045
     Dates: start: 2019
  2. AZELASTINE HCL [Concomitant]
     Active Substance: AZELASTINE HYDROCHLORIDE

REACTIONS (6)
  - Device defective [Unknown]
  - Hypersensitivity [Unknown]
  - Wrong technique in product usage process [Unknown]
  - Rhinorrhoea [Unknown]
  - Nasal congestion [Unknown]
  - Device delivery system issue [Unknown]
